FAERS Safety Report 4853779-9 (Version None)
Quarter: 2005Q4

REPORT INFORMATION
  Report Type: 
  Country: None (occurrence: None)
  Receive Date: 20051212
  Receipt Date: 20051128
  Transmission Date: 20060501
  Serious: Yes (Hospitalization, Other)
  Sender: FDA-Public Use
  Company Number: 2005161313

PATIENT
  Sex: Male
  Weight: 108.8633 kg

DRUGS (3)
  1. VIAGRA [Suspect]
     Indication: ILL-DEFINED DISORDER
     Dosage: ORAL
     Route: 048
  2. ALPRAZOLAM [Suspect]
     Indication: STRESS
  3. IBUPROFEN [Concomitant]

REACTIONS (8)
  - DIVORCED [None]
  - DRUG INEFFECTIVE [None]
  - ERECTILE DYSFUNCTION [None]
  - LOSS OF EMPLOYMENT [None]
  - MUSCLE STRAIN [None]
  - NEPHROLITHIASIS [None]
  - OFF LABEL USE [None]
  - STRESS [None]
